FAERS Safety Report 7484406-2 (Version None)
Quarter: 2011Q1

REPORT INFORMATION
  Report Type: 
  Country: None (occurrence: None)
  Receive Date: 20110309
  Receipt Date: 20110209
  Transmission Date: 20110831
  Serious: No
  Sender: FDA-Public Use
  Company Number: 2011SP006403

PATIENT
  Age: 55 Year
  Sex: Female

DRUGS (1)
  1. SAPHRIS [Suspect]
     Indication: PRODUCT USED FOR UNKNOWN INDICATION
     Dosage: 5 MG; BID; SL
     Route: 060
     Dates: start: 20110101, end: 20110101

REACTIONS (1)
  - URTICARIA [None]
